FAERS Safety Report 4665784-6 (Version None)
Quarter: 2005Q2

REPORT INFORMATION
  Report Type: 
  Country: None (occurrence: None)
  Receive Date: 20050519
  Receipt Date: 20050512
  Transmission Date: 20051028
  Serious: Yes (Death)
  Sender: FDA-Public Use
  Company Number: 200514333GDDC

PATIENT
  Sex: Male

DRUGS (11)
  1. ALLOPURINOL [Suspect]
  2. FUROSEMIDE [Suspect]
  3. SPIRIVA [Suspect]
     Route: 055
  4. DIGOXIN [Suspect]
  5. PANTOPRAZOLE SODIUM [Suspect]
  6. PERINDOPRIL [Suspect]
  7. SIMVASTATIN [Suspect]
  8. WARFARIN [Suspect]
  9. BECLOMETASONE [Suspect]
  10. VENTOLIN HFA [Suspect]
     Route: 055
  11. PARACETAMOL [Suspect]

REACTIONS (1)
  - AORTIC DISSECTION [None]
